FAERS Safety Report 6523990-X (Version None)
Quarter: 2009Q4

REPORT INFORMATION
  Report Type: 
  Country: None (occurrence: None)
  Receive Date: 20091231
  Receipt Date: 20091221
  Transmission Date: 20100525
  Serious: Yes (Hospitalization)
  Sender: FDA-Public Use
  Company Number: NSADSS2002024393

PATIENT
  Age: 74 Year
  Sex: Male
  Weight: 73.94 kg

DRUGS (6)
  1. REMICADE [Suspect]
     Indication: RHEUMATOID ARTHRITIS
     Route: 041
  2. ARAVA [Suspect]
     Indication: RHEUMATOID ARTHRITIS
     Route: 065
  3. PREDNISONE [Concomitant]
     Indication: RHEUMATOID ARTHRITIS
  4. DIOVAN [Concomitant]
     Indication: HYPERTENSION
  5. PROCARDIA [Concomitant]
     Indication: HYPERTENSION
  6. NEXIUM [Concomitant]

REACTIONS (5)
  - CONDITION AGGRAVATED [None]
  - HAEMOGLOBIN DECREASED [None]
  - HYPERTENSION [None]
  - MENINGITIS LISTERIA [None]
  - MOUTH ULCERATION [None]
